FAERS Safety Report 13592075 (Version 1)
Quarter: 2020Q3

REPORT INFORMATION
  Report Type: Report from Study
  Country: FR (occurrence: FR)
  Receive Date: 20170530
  Receipt Date: 20170530
  Transmission Date: 20201105
  Serious: Yes (Life-Threatening, Hospitalization)
  Sender: FDA-Public Use
  Company Number: FR-JNJFOC-20170501336

PATIENT
  Age: 56 Year
  Sex: Male

DRUGS (7)
  1. TRABECTEDIN [Suspect]
     Active Substance: TRABECTEDIN
     Route: 042
  2. TRABECTEDIN [Suspect]
     Active Substance: TRABECTEDIN
     Indication: LEIOMYOSARCOMA
     Dosage: A TOTAL DOSE OF 21, MG ON 18?APR?2017, CYCLE 1
     Route: 042
     Dates: start: 20170418, end: 20170418
  3. DOXORUBICIN [Suspect]
     Active Substance: DOXORUBICIN
     Indication: LEIOMYOSARCOMA
     Dosage: A TOTAL DOSE OF 115,8 MG ON 18?APR?2017
     Route: 042
     Dates: start: 20170418, end: 20170418
  4. DOXORUBICIN [Suspect]
     Active Substance: DOXORUBICIN
     Route: 042
  5. NEULASTA [Concomitant]
     Active Substance: PEGFILGRASTIM
     Dosage: 1 DAY AFTER FIRST CYCLE OF CHEMOTHERAPY
     Route: 065
  6. DOMPERIDONE [Concomitant]
     Active Substance: DOMPERIDONE
     Route: 065
  7. ONDANSETRON [Concomitant]
     Active Substance: ONDANSETRON
     Route: 065

REACTIONS (1)
  - Pneumonia [Recovered/Resolved]

NARRATIVE: CASE EVENT DATE: 20170426
